FAERS Safety Report 11175621 (Version 1)
Quarter: 2015Q2

REPORT INFORMATION
  Report Type: Report from Study
  Country: FR (occurrence: FR)
  Receive Date: 20150609
  Receipt Date: 20150609
  Transmission Date: 20150821
  Serious: Yes (Hospitalization, Other)
  Sender: FDA-Public Use
  Company Number: FR-GLAXOSMITHKLINE-FR2015GSK079185

PATIENT
  Age: 69 Year
  Sex: Male

DRUGS (7)
  1. TENSTATEN [Concomitant]
     Active Substance: CICLETANINE HYDROCHLORIDE
  2. PLAVIX [Concomitant]
     Active Substance: CLOPIDOGREL BISULFATE
  3. TRIATEC [Concomitant]
     Active Substance: RAMIPRIL
  4. CARDENSIEL [Concomitant]
     Active Substance: BISOPROLOL FUMARATE
  5. SIMVASTATIN. [Concomitant]
     Active Substance: SIMVASTATIN
  6. OMEGA-3-ACID ETHYL ESTERS. [Suspect]
     Active Substance: OMEGA-3-ACID ETHYL ESTERS
     Indication: ISCHAEMIC HEART DISEASE PROPHYLAXIS
     Dosage: UNK
     Dates: start: 20070425, end: 20070426
  7. KARDEGIC [Concomitant]
     Active Substance: ASPIRIN LYSINE

REACTIONS (2)
  - Neoplasm malignant [Unknown]
  - Neoplasm [Unknown]

NARRATIVE: CASE EVENT DATE: 200804
